FAERS Safety Report 22647187 (Version 8)
Quarter: 2024Q3

REPORT INFORMATION
  Report Type: Report from Study
  Country: JP (occurrence: None)
  Receive Date: 20230627
  Receipt Date: 20240906
  Transmission Date: 20241017
  Serious: Yes (Death, Life-Threatening)
  Sender: ASTRAZENECA
  Company Number: 2023A131060

PATIENT
  Age: 74 Year
  Sex: Female
  Weight: 48 kg

DRUGS (7)
  1. IMFINZI [Suspect]
     Active Substance: DURVALUMAB
     Indication: Hepatocellular carcinoma
     Dosage: 1500.0MG UNKNOWN
     Route: 041
     Dates: start: 20230508, end: 20230508
  2. IMJUDO [Suspect]
     Active Substance: TREMELIMUMAB\TREMELIMUMAB-ACTL
     Indication: Hepatocellular carcinoma
     Dosage: 300.0MG UNKNOWN
     Route: 041
     Dates: start: 20230508, end: 20230508
  3. TECENTRIQ [Suspect]
     Active Substance: ATEZOLIZUMAB
     Indication: Hepatocellular carcinoma
     Dates: start: 20220427, end: 20230201
  4. ESOMEPRAZOLE [Concomitant]
     Active Substance: ESOMEPRAZOLE
     Route: 048
     Dates: start: 20230222, end: 20230529
  5. OLOPATADINE [Concomitant]
     Active Substance: OLOPATADINE
     Dosage: DOSE UNKNOWN
     Route: 048
     Dates: start: 20230517
  6. AMLODIPINE [Concomitant]
     Active Substance: AMLODIPINE BESYLATE
     Dosage: DOSE UNKNOWN
     Route: 048
  7. CANDESARTAN [Concomitant]
     Active Substance: CANDESARTAN
     Route: 048

REACTIONS (5)
  - Cytokine release syndrome [Recovered/Resolved]
  - Decreased appetite [Unknown]
  - Haemophagocytic lymphohistiocytosis [Recovering/Resolving]
  - Immune-mediated hepatic disorder [Fatal]
  - Bile duct stone [Not Recovered/Not Resolved]

NARRATIVE: CASE EVENT DATE: 20230101
